FAERS Safety Report 21759018 (Version 3)
Quarter: 2022Q4

REPORT INFORMATION
  Report Type: Report from Study
  Country: GB (occurrence: GB)
  Receive Date: 20221221
  Receipt Date: 20221228
  Transmission Date: 20230113
  Serious: Yes (Other)
  Sender: FDA-Public Use
  Company Number: GB-ABBVIE-4244544

PATIENT
  Sex: Female

DRUGS (1)
  1. SKYRIZI [Suspect]
     Active Substance: RISANKIZUMAB-RZAA
     Indication: Psoriasis
     Route: 058

REACTIONS (5)
  - Bell^s palsy [Recovering/Resolving]
  - Gastroenteritis viral [Unknown]
  - Nasopharyngitis [Unknown]
  - Herpes zoster [Recovering/Resolving]
  - Psoriasis [Recovering/Resolving]
